FAERS Safety Report 6298605-9 (Version None)
Quarter: 2009Q3

REPORT INFORMATION
  Report Type: 
  Country: None (occurrence: None)
  Receive Date: 20090804
  Receipt Date: 20090727
  Transmission Date: 20100115
  Serious: Yes (Hospitalization)
  Sender: FDA-Public Use
  Company Number: 2009SS000045

PATIENT

DRUGS (1)
  1. BOTULINUM TOXIN TYPE B (BOTULINUM TOXIN TYPE B) [Suspect]
     Indication: MUSCLE SPASTICITY
     Dosage: IM
     Route: 030

REACTIONS (4)
  - CONSTIPATION [None]
  - DRY MOUTH [None]
  - PAIN [None]
  - TENDERNESS [None]
